FAERS Safety Report 7716092-8 (Version None)
Quarter: 2011Q3

REPORT INFORMATION
  Report Type: 
  Country: None (occurrence: None)
  Receive Date: 20110829
  Receipt Date: 20110819
  Transmission Date: 20111222
  Serious: Yes (Hospitalization)
  Sender: FDA-Public Use
  Company Number: US-GLAXOSMITHKLINE-A0929596A

PATIENT
  Age: 47 Year
  Sex: Male

DRUGS (1)
  1. AVANDIA [Suspect]
     Indication: TYPE 2 DIABETES MELLITUS
     Route: 048
     Dates: start: 20030828, end: 20100807

REACTIONS (8)
  - ANGINA PECTORIS [None]
  - VASCULAR GRAFT [None]
  - ISCHAEMIA [None]
  - DYSPNOEA [None]
  - ANGIOPLASTY [None]
  - CORONARY ARTERY STENOSIS [None]
  - CHEST PAIN [None]
  - SUBCLAVIAN ARTERY STENOSIS [None]
